FAERS Safety Report 19428306 (Version 6)
Quarter: 2021Q4

REPORT INFORMATION
  Report Type: Spontaneous
  Country: DE (occurrence: DE)
  Receive Date: 20210616
  Receipt Date: 20211118
  Transmission Date: 20220303
  Serious: Yes (Other)
  Sender: FDA-Public Use
  Company Number: DE-CELLTRION INC.-2021DE008139

PATIENT

DRUGS (12)
  1. TRASTUZUMAB [Suspect]
     Active Substance: TRASTUZUMAB
     Indication: HER2 positive breast cancer
     Dosage: 6 MICROGRAM/KILOGRAM
     Route: 065
  2. TRASTUZUMAB [Suspect]
     Active Substance: TRASTUZUMAB
     Dosage: LOADING DOSE/STARTING WITH A LOADING DOSE OF 8 MG/KG FOLLOWED BY 6 MG/KG EVERY 3 WEEKS. THE CUMULATI
     Route: 065
  3. TRASTUZUMAB [Suspect]
     Active Substance: TRASTUZUMAB
     Dosage: 6 MG/KG EVERY 3 WEEKS, (STARTING WITH A LOADING DOSE OF 8 MG/KG FOLLOWED BY 6MG/KG EVERY 3 WEEKS. TH
  4. TRASTUZUMAB [Suspect]
     Active Substance: TRASTUZUMAB
     Dosage: THREE COURSES OF TRASTUZUMAB (PHARMACEUTICAL DOSE FORM: INJECTION)
  5. TRASTUZUMAB [Suspect]
     Active Substance: TRASTUZUMAB
     Dosage: 8 MICROGRAM/KILOGRAM
     Route: 065
  6. TRASTUZUMAB [Suspect]
     Active Substance: TRASTUZUMAB
     Dosage: STARTING WITH A LOADING DOSE OF 8 MG/KG FOLLOWED BY 6 MG/KG EVERY 3 WEEKS. THE CUMULATIVE DOSE OF TR
  7. TRASTUZUMAB [Suspect]
     Active Substance: TRASTUZUMAB
     Dosage: STARTING WITH A LOADING DOSE OF 8 MG/KG FOLLOWED BY 6 MG/KG EVERY 3 WEEKS. THE CUMULATIVE DOSE OF TR
  8. TRASTUZUMAB [Suspect]
     Active Substance: TRASTUZUMAB
     Dosage: 8 MICROGRAM/KILOGRAM (PHARMACEUTICAL DOSE FORM: INJECTION)
     Route: 065
  9. TRASTUZUMAB [Suspect]
     Active Substance: TRASTUZUMAB
     Dosage: 6 MICROGRAM/KILOGRAM, Q3WK (PHARMACEUTICAL DOSE FORM: INJECTION)
     Route: 065
  10. PACLITAXEL [Suspect]
     Active Substance: PACLITAXEL
     Indication: HER2 positive breast cancer
     Dosage: PACLITAXEL 80 MG/M2 WEEKLY
     Route: 065
  11. PACLITAXEL [Suspect]
     Active Substance: PACLITAXEL
     Dosage: SEVEN COURSES OF PACLITAXEL
  12. PACLITAXEL [Suspect]
     Active Substance: PACLITAXEL
     Dosage: 80 MILLIGRAM/SQ. METER, QWK

REACTIONS (6)
  - Keratitis [Unknown]
  - Neuropathy peripheral [Unknown]
  - Ophthalmic herpes simplex [Unknown]
  - Immune-mediated adverse reaction [Unknown]
  - Corneal disorder [Unknown]
  - Off label use [Unknown]
